FAERS Safety Report 9781178 (Version 1)
Quarter: 2013Q4

REPORT INFORMATION
  Report Type: Spontaneous
  Country: US (occurrence: None)
  Receive Date: 20131223
  Receipt Date: 20131223
  Transmission Date: 20140711
  Serious: Yes (Disabling)
  Sender: FDA-Public Use
  Company Number: None

PATIENT
  Age: 68 Year
  Sex: Female
  Weight: 48.08 kg

DRUGS (1)
  1. AZOR 10/40 [Suspect]
     Indication: HYPERTENSION
     Dosage: 1 TAB DAILY  ONCE DAILY
     Dates: start: 20110111, end: 20131219

REACTIONS (1)
  - Weight decreased [None]
